FAERS Safety Report 15611003 (Version 1)
Quarter: 2018Q4

REPORT INFORMATION
  Report Type: Spontaneous
  Country: US (occurrence: US)
  Receive Date: 20181113
  Receipt Date: 20181113
  Transmission Date: 20190205
  Serious: Yes (Other)
  Sender: FDA-Public Use
  Company Number: US-ROCHE-2061442

PATIENT
  Age: 11 Year
  Sex: Male
  Weight: 98 kg

DRUGS (1)
  1. TAMIFLU [Suspect]
     Active Substance: OSELTAMIVIR PHOSPHATE
     Indication: PRODUCT USED FOR UNKNOWN INDICATION
     Route: 048
     Dates: start: 20180122, end: 20180122

REACTIONS (2)
  - Vomiting [Unknown]
  - Asthma [Unknown]

NARRATIVE: CASE EVENT DATE: 20180122
